FAERS Safety Report 4596052-9 (Version None)
Quarter: 2005Q1

REPORT INFORMATION
  Report Type: 
  Country: None (occurrence: None)
  Receive Date: 20050225
  Receipt Date: 20041215
  Transmission Date: 20050727
  Serious: Yes (Hospitalization, Other)
  Sender: FDA-Public Use
  Company Number: HQWYE494117NOV04

PATIENT
  Age: 71 Year
  Sex: Female

DRUGS (6)
  1. GEMTUZUMAB OZOGAMICIN (GEMTUZUMAB OZOGAMICIN, INJECTION) [Suspect]
     Indication: ACUTE MYELOID LEUKAEMIA
     Dosage: 10 MG 1X PER 1 DAY INTRAVENOUS
     Route: 042
     Dates: start: 20041012, end: 20041012
  2. GEMTUZUMAB OZOGAMICIN (GEMTUZUMAB OZOGAMICIN, INJECTION) [Suspect]
     Indication: ACUTE MYELOID LEUKAEMIA
     Dosage: 10 MG 1X PER 1 DAY INTRAVENOUS
     Route: 042
     Dates: start: 20041110, end: 20041110
  3. DIFLUCAN [Concomitant]
  4. MARCUMAR [Concomitant]
  5. VALTREX [Concomitant]
  6. VORICONAZOLE (VORICONAZOLE) [Concomitant]

REACTIONS (3)
  - EXANTHEM [None]
  - HYPOTENSION [None]
  - PYREXIA [None]
